FAERS Safety Report 13847165 (Version 1)
Quarter: 2017Q3

REPORT INFORMATION
  Report Type: Report from Study
  Country: US (occurrence: US)
  Receive Date: 20170808
  Receipt Date: 20170808
  Transmission Date: 20171127
  Serious: Yes (Hospitalization)
  Sender: FDA-Public Use
  Company Number: US-EXELIXIS-CABO-17010065

PATIENT
  Sex: Male

DRUGS (12)
  1. CABOMETYX [Suspect]
     Active Substance: CABOZANTINIB S-MALATE
     Indication: BONE CANCER
  2. PROCHLORPERAZINE. [Concomitant]
     Active Substance: PROCHLORPERAZINE
  3. MEGESTROL ACETATE. [Concomitant]
     Active Substance: MEGESTROL ACETATE
  4. COLACE [Concomitant]
     Active Substance: DOCUSATE SODIUM
  5. DIPHENHYDRAMIN [Concomitant]
     Active Substance: DIPHENHYDRAMINE
  6. DILAUDID [Concomitant]
     Active Substance: HYDROMORPHONE HYDROCHLORIDE
  7. ZOMETA [Concomitant]
     Active Substance: ZOLEDRONIC ACID
  8. PREDNISONE. [Concomitant]
     Active Substance: PREDNISONE
  9. RANITIDINE. [Concomitant]
     Active Substance: RANITIDINE
  10. FENTANYL. [Concomitant]
     Active Substance: FENTANYL
  11. CABOMETYX [Suspect]
     Active Substance: CABOZANTINIB S-MALATE
     Indication: RENAL CANCER
     Dosage: UNK UNK, QD
     Route: 048
     Dates: start: 201707
  12. ZOFRAN [Concomitant]
     Active Substance: ONDANSETRON HYDROCHLORIDE

REACTIONS (3)
  - Confusional state [Unknown]
  - Gait disturbance [Unknown]
  - Blood calcium increased [Unknown]
